FAERS Safety Report 20507587 (Version 1)
Quarter: 2022Q1

REPORT INFORMATION
  Report Type: Spontaneous
  Country: US (occurrence: None)
  Receive Date: 20220223
  Receipt Date: 20220223
  Transmission Date: 20220423
  Serious: No
  Sender: FDA-Public Use
  Company Number: None

PATIENT
  Age: 73 Year
  Sex: Male
  Weight: 89.36 kg

DRUGS (1)
  1. TALTZ [Suspect]
     Active Substance: IXEKIZUMAB
     Indication: Spinal osteoarthritis
     Dosage: FREQUENCY : MONTHLY;?
     Route: 058
     Dates: start: 202104

REACTIONS (2)
  - Pancreatic carcinoma [None]
  - Therapy interrupted [None]
